FAERS Safety Report 8006877-5 (Version None)
Quarter: 2011Q4

REPORT INFORMATION
  Report Type: 
  Country: None (occurrence: None)
  Receive Date: 20111227
  Receipt Date: 20111216
  Transmission Date: 20120403
  Serious: Yes (Hospitalization)
  Sender: FDA-Public Use
  Company Number: US-BAYER-2011-041915

PATIENT
  Age: 43 Year
  Sex: Female
  Weight: 65.306 kg

DRUGS (12)
  1. LEVOTHYROXINE SODIUM [Concomitant]
     Indication: HYPOTHYROIDISM
     Dosage: UNK
     Route: 048
     Dates: start: 19920101
  2. YASMIN [Suspect]
     Indication: POLYCYSTIC OVARIES
     Dosage: UNK
     Dates: start: 20030501, end: 20080801
  3. DROSPIRENONE AND ETHINYL ESTRADIOL [Suspect]
     Indication: POLYCYSTIC OVARIES
     Dosage: UNK
     Dates: start: 20080901, end: 20100401
  4. YAZ [Suspect]
     Indication: POLYCYSTIC OVARIES
     Dosage: UNK
     Dates: start: 20100501, end: 20100616
  5. SPIRONOLACTONE [Concomitant]
     Indication: ANXIETY
     Dosage: UNK
     Route: 048
     Dates: start: 20030101
  6. LAMOTRIGINE [Concomitant]
     Indication: POLYCYSTIC OVARIES
     Dosage: UNK
     Route: 048
     Dates: start: 20100101
  7. OMEPRAZOLE [Concomitant]
     Indication: GASTROOESOPHAGEAL REFLUX DISEASE
     Dosage: UNK
     Route: 048
     Dates: start: 19900101
  8. METFORMIN [Concomitant]
     Indication: POLYCYSTIC OVARIES
     Dosage: UNK UNK, BID
     Route: 048
     Dates: start: 20030101
  9. TOPIRAMATE [Concomitant]
     Indication: MIGRAINE
     Dosage: UNK
     Route: 048
     Dates: start: 20100101
  10. ADDERALL 5 [Concomitant]
     Indication: ANXIETY
     Dosage: UNK
     Dates: start: 20060101
  11. RESTORIL [Concomitant]
     Indication: ANXIETY
     Dosage: UNK
     Route: 048
     Dates: start: 20100101
  12. KLONOPIN [Concomitant]
     Indication: ANXIETY
     Dosage: UNK UNK, BID
     Route: 048
     Dates: start: 20100101

REACTIONS (13)
  - DYSPNOEA [None]
  - HEART RATE DECREASED [None]
  - DEEP VEIN THROMBOSIS [None]
  - OEDEMA PERIPHERAL [None]
  - PAIN IN EXTREMITY [None]
  - DEPRESSION [None]
  - CHEST PAIN [None]
  - PAIN [None]
  - PULMONARY EMBOLISM [None]
  - EMOTIONAL DISTRESS [None]
  - INJURY [None]
  - ANXIETY [None]
  - DIZZINESS POSTURAL [None]
